FAERS Safety Report 7772860-8 (Version None)
Quarter: 2011Q3

REPORT INFORMATION
  Report Type: 
  Country: None (occurrence: None)
  Receive Date: 20110922
  Receipt Date: 20100916
  Transmission Date: 20111222
  Serious: Yes (Hospitalization)
  Sender: FDA-Public Use
  Company Number: US-ASTRAZENECA-2010SE43657

PATIENT
  Age: 30 Year
  Sex: Male

DRUGS (6)
  1. PAPCID [Concomitant]
  2. ABILIFY [Concomitant]
  3. MARIJUANA [Concomitant]
  4. SEROQUEL XR [Suspect]
     Indication: BIPOLAR DISORDER
     Route: 048
  5. IBUPROFEN [Concomitant]
  6. PAIN MEDICATION [Concomitant]

REACTIONS (1)
  - PANCREATITIS [None]
